FAERS Safety Report 21953320 (Version 4)
Quarter: 2025Q3

REPORT INFORMATION
  Report Type: Report from Study
  Country: US (occurrence: US)
  Receive Date: 20230204
  Receipt Date: 20250917
  Transmission Date: 20251020
  Serious: Yes (Hospitalization, Other)
  Sender: TAKEDA
  Company Number: US-TAKEDA-2023TUS010021

PATIENT
  Age: 39 Year
  Sex: Female
  Weight: 51.701 kg

DRUGS (8)
  1. BRIGATINIB [Suspect]
     Active Substance: BRIGATINIB
     Indication: Lung neoplasm malignant
     Dosage: 180 MILLIGRAM, QD
     Dates: start: 202301
  2. BRIGATINIB [Suspect]
     Active Substance: BRIGATINIB
     Dosage: 90 MILLIGRAM, QD
  3. BRIGATINIB [Suspect]
     Active Substance: BRIGATINIB
     Dosage: 90 MILLIGRAM, QD
     Dates: start: 202502
  4. DECADRON [Concomitant]
     Active Substance: DEXAMETHASONE
  5. MUCINEX [Concomitant]
     Active Substance: GUAIFENESIN
  6. DEXAMETHASONE [Concomitant]
     Active Substance: DEXAMETHASONE
  7. GUAIFENESIN [Concomitant]
     Active Substance: GUAIFENESIN
  8. PROCHLORPERAZINE [Concomitant]
     Active Substance: PROCHLORPERAZINE

REACTIONS (6)
  - Pneumonia fungal [Unknown]
  - Pneumonia [Unknown]
  - COVID-19 [Unknown]
  - Renal disorder [Unknown]
  - Gingival pain [Unknown]
  - Nausea [Unknown]

NARRATIVE: CASE EVENT DATE: 20230201
